FAERS Safety Report 9214088 (Version 2)
Quarter: 2013Q2

REPORT INFORMATION
  Report Type: Spontaneous
  Country: AU (occurrence: AU)
  Receive Date: 20130405
  Receipt Date: 20130409
  Transmission Date: 20140414
  Serious: Yes (Life-Threatening, Hospitalization, Other)
  Sender: FDA-Public Use
  Company Number: AU-PFIZER INC-2005079537

PATIENT
  Age: 17 Year
  Sex: Male
  Weight: 47 kg

DRUGS (7)
  1. IBUPROFEN [Suspect]
     Indication: PROCEDURAL PAIN
     Dosage: 400 MG, 1 IN 1 TOTAL
     Route: 048
  2. FLUTICASONE PROPIONATE [Concomitant]
     Dosage: 2 PUFFS BID
     Route: 055
  3. MIDAZOLAM HCL [Concomitant]
     Dosage: UNSPECIFIED
     Route: 042
  4. PROPOFOL [Concomitant]
     Dosage: UNSPECIFIED
     Route: 042
  5. NITROUS OXIDE [Concomitant]
     Dosage: UNSPECIFIED
     Route: 065
  6. ISOFLURANE [Concomitant]
     Dosage: UNSPECIFIED
     Route: 065
  7. BUPIVACAINE HCL [Concomitant]
     Dosage: 0.5% 12 ML
     Route: 065

REACTIONS (3)
  - Status asthmaticus [Recovered/Resolved]
  - Asthma [Recovered/Resolved]
  - Condition aggravated [Recovered/Resolved]
